FAERS Safety Report 12625739 (Version 2)
Quarter: 2016Q4

REPORT INFORMATION
  Report Type: Report from Study
  Country: None (occurrence: US)
  Receive Date: 20160805
  Receipt Date: 20161010
  Transmission Date: 20170207
  Serious: Yes (Death)
  Sender: FDA-Public Use
  Company Number: US-ABBVIE-16K-163-1693734-00

PATIENT
  Age: 72 Year
  Sex: Female
  Weight: 130 kg

DRUGS (2)
  1. LEVOTHYROXINE. [Concomitant]
     Active Substance: LEVOTHYROXINE
     Indication: PRODUCT USED FOR UNKNOWN INDICATION
  2. HUMIRA [Suspect]
     Active Substance: ADALIMUMAB
     Indication: PRODUCT USED FOR UNKNOWN INDICATION
     Route: 058
     Dates: end: 201607

REACTIONS (2)
  - Post procedural complication [Fatal]
  - Obesity [Fatal]

NARRATIVE: CASE EVENT DATE: 201607
